FAERS Safety Report 8878851 (Version 1)
Quarter: 2012Q4

REPORT INFORMATION
  Report Type: Report from Study
  Country: JP (occurrence: JP)
  Receive Date: 20121026
  Receipt Date: 20121026
  Transmission Date: 20130627
  Serious: Yes (Other)
  Sender: FDA-Public Use
  Company Number: JP-VERTEX PHARMACEUTICAL INC.-2012-023413

PATIENT
  Age: 71 Year
  Sex: Female

DRUGS (6)
  1. VX-950 [Suspect]
     Indication: HEPATITIS C
     Dosage: 2250 mg, qd
     Route: 048
     Dates: start: 20120810, end: 20120816
  2. VX-950 [Suspect]
     Dosage: 1500 mg, UNK
     Route: 048
     Dates: start: 20120817, end: 20120829
  3. VX-950 [Suspect]
     Dosage: 750 mg, qd
     Route: 048
     Dates: start: 20120830, end: 20120920
  4. PEGINTRON                          /01543001/ [Suspect]
     Indication: HEPATITIS C
     Dosage: 1.5 ?g/kg, qw
     Route: 058
     Dates: start: 20120810
  5. RIBAVIRIN [Suspect]
     Indication: HEPATITIS C
     Dosage: 400 mg, UNK
     Route: 048
     Dates: start: 20120801
  6. NAUZELIN [Concomitant]
     Dosage: 30 mg, qd
     Route: 048
     Dates: start: 20120810

REACTIONS (3)
  - Haemoglobin decreased [Not Recovered/Not Resolved]
  - White blood cell count decreased [Not Recovered/Not Resolved]
  - Platelet count decreased [Not Recovered/Not Resolved]
